FAERS Safety Report 13036869 (Version 1)
Quarter: 2016Q4

REPORT INFORMATION
  Report Type: Spontaneous
  Country: US (occurrence: US)
  Receive Date: 20161216
  Receipt Date: 20161216
  Transmission Date: 20170207
  Serious: Yes (Other)
  Sender: FDA-Public Use
  Company Number: US-LPDUSPRD-20161122

PATIENT
  Age: 62 Year
  Sex: Male

DRUGS (7)
  1. SODIUM CHLORIDE INJECTION, USP (2802-25) [Suspect]
     Active Substance: SODIUM CHLORIDE
     Dosage: 24 UG/ML
     Route: 022
  2. UNKNOWN BETABLOCKER [Concomitant]
     Dosage: DOSE UNKNOWN
     Route: 065
  3. ADENOSINE INJECTION, USP (6404-10) 3 MG/ML [Suspect]
     Active Substance: ADENOSINE
     Dosage: 72 UG
     Route: 022
  4. HEPARIN [Concomitant]
     Active Substance: HEPARIN SODIUM
     Dosage: DOSE UNKNOWN
     Route: 042
  5. HIGH INTENSITY STATIN [Concomitant]
     Dosage: DOSE UNKNOWN
     Route: 065
  6. ASPIRIN. [Concomitant]
     Active Substance: ASPIRIN
     Dosage: 324 MG SINGLE DOSE
     Route: 048
  7. NITROGLYCERINE [Concomitant]
     Active Substance: NITROGLYCERIN
     Dosage: 0.4 MG SINGLE DOSE
     Route: 060

REACTIONS (2)
  - Ventricular fibrillation [Unknown]
  - Ventricular tachycardia [Unknown]
